FAERS Safety Report 5661417-0 (Version None)
Quarter: 2008Q1

REPORT INFORMATION
  Report Type: 
  Country: None (occurrence: None)
  Receive Date: 20080311
  Receipt Date: 20080301
  Transmission Date: 20080703
  Serious: Yes (Other)
  Sender: FDA-Public Use
  Company Number: US-PFIZER INC-2008019590

PATIENT
  Sex: Female
  Weight: 75 kg

DRUGS (10)
  1. CELEBREX [Suspect]
     Indication: ARTHRITIS
  2. CELEBREX [Suspect]
     Indication: BURSITIS
  3. VITAMIN CAP [Concomitant]
  4. CALCIUM [Concomitant]
  5. VALSARTAN [Concomitant]
  6. FIBERCON [Concomitant]
  7. PLAVIX [Concomitant]
  8. CIMETIDINE [Concomitant]
  9. FOLIC ACID [Concomitant]
  10. FOSAMAX [Concomitant]

REACTIONS (2)
  - DRUG INEFFECTIVE [None]
  - GAIT DISTURBANCE [None]
